FAERS Safety Report 22386536 (Version 3)
Quarter: 2024Q2

REPORT INFORMATION
  Report Type: Report from Study
  Country: ES (occurrence: ES)
  Receive Date: 20230531
  Receipt Date: 20240619
  Transmission Date: 20240716
  Serious: Yes (Other)
  Sender: FDA-Public Use
  Company Number: ES-ABBVIE-4292139

PATIENT
  Sex: Female
  Weight: 52 kg

DRUGS (3)
  1. CARBIDOPA\LEVODOPA [Suspect]
     Active Substance: CARBIDOPA\LEVODOPA
     Indication: Parkinson^s disease
     Route: 050
     Dates: start: 20190529
  2. CARBIDOPA\LEVODOPA [Suspect]
     Active Substance: CARBIDOPA\LEVODOPA
     Dosage: AFTERNOON PUMP 0.9 ML/H.
     Route: 050
     Dates: end: 202305
  3. CARBIDOPA\LEVODOPA [Suspect]
     Active Substance: CARBIDOPA\LEVODOPA
     Dosage: CONTINUOUS DOSE IS UPDATED TO 2.1 ML/H
     Route: 050
     Dates: start: 202305

REACTIONS (7)
  - Tachycardia paroxysmal [Unknown]
  - Anxiety [Unknown]
  - Dyskinesia [Not Recovered/Not Resolved]
  - Night sweats [Not Recovered/Not Resolved]
  - Parkinson^s disease [Unknown]
  - Discomfort [Not Recovered/Not Resolved]
  - On and off phenomenon [Unknown]
